FAERS Safety Report 8917790 (Version 1)
Quarter: 2012Q4

REPORT INFORMATION
  Report Type: 
  Country: US (occurrence: US)
  Receive Date: 20121120
  Receipt Date: 20121120
  Transmission Date: 20130627
  Serious: No
  Sender: FDA-Public Use
  Company Number: US-ASTRAZENECA-2005UW10684

PATIENT
  Age: 88 Year
  Sex: Female
  Weight: 77.1 kg

DRUGS (6)
  1. NEXIUM [Suspect]
     Indication: GASTROOESOPHAGEAL REFLUX DISEASE
     Route: 048
     Dates: start: 2005
  2. PULMICORT RESPULES [Suspect]
     Indication: BRONCHIOLITIS
     Route: 055
  3. PULMICORT RESPULES [Suspect]
     Indication: BRONCHITIS
     Route: 055
  4. CARDIZEM [Concomitant]
  5. SYNTHROID [Concomitant]
     Indication: THYROID DISORDER
  6. ARTHRITIS MEDICATIONS [Concomitant]
     Indication: ARTHRITIS

REACTIONS (14)
  - Oropharyngeal blistering [Unknown]
  - Gastric polyps [Unknown]
  - Weight increased [Unknown]
  - Tongue blistering [Unknown]
  - Pain in extremity [Unknown]
  - Weight decreased [Unknown]
  - Body height decreased [Unknown]
  - Dysphonia [Unknown]
  - Oral mucosal blistering [Unknown]
  - Malaise [Unknown]
  - Oedema peripheral [Unknown]
  - Malaise [Unknown]
  - Erythema [Unknown]
  - Off label use [Unknown]
